FAERS Safety Report 11856025 (Version 2)
Quarter: 2016Q1

REPORT INFORMATION
  Report Type: Spontaneous
  Country: US (occurrence: US)
  Receive Date: 20151221
  Receipt Date: 20160329
  Transmission Date: 20160526
  Serious: Yes (Other)
  Sender: FDA-Public Use
  Company Number: US-SA-2015SA215544

PATIENT
  Age: 61 Year
  Sex: Female

DRUGS (16)
  1. VITAMIN D [Concomitant]
     Active Substance: CHOLECALCIFEROL
  2. FISH OIL [Concomitant]
     Active Substance: FISH OIL
  3. VITAMIN B COMPLEX [Concomitant]
     Active Substance: CYANOCOBALAMIN\DEXPANTHENOL\NIACINAMIDE\PYRIDOXINE HYDROCHLORIDE\RIBOFLAVIN 5^-PHOSPHATE SODIUM\THIAMINE HYDROCHLORIDE\VITAMIN B COMPLEX
  4. VITAMIN D3 [Concomitant]
     Active Substance: CHOLECALCIFEROL
  5. AUBAGIO [Suspect]
     Active Substance: TERIFLUNOMIDE
     Indication: MULTIPLE SCLEROSIS
     Route: 048
     Dates: start: 201508
  6. VITAMIN E [Concomitant]
     Active Substance: .ALPHA.-TOCOPHEROL
  7. FOLIC ACID. [Concomitant]
     Active Substance: FOLIC ACID
  8. AMPYRA [Concomitant]
     Active Substance: DALFAMPRIDINE
  9. COUMADIN [Concomitant]
     Active Substance: WARFARIN SODIUM
  10. ASPIRIN. [Concomitant]
     Active Substance: ASPIRIN
  11. BIOTIN [Concomitant]
     Active Substance: BIOTIN
  12. PROVIGIL [Concomitant]
     Active Substance: MODAFINIL
  13. VITAMIN C [Concomitant]
     Active Substance: ASCORBIC ACID
  14. CALTRATE [Concomitant]
     Active Substance: CALCIUM CARBONATE
  15. DEXILANT [Concomitant]
     Active Substance: DEXLANSOPRAZOLE
  16. GARCINIA CAMBOGIA [Concomitant]
     Active Substance: HYDROXYCITRIC ACID

REACTIONS (4)
  - Fall [Unknown]
  - Parkinson^s disease [Unknown]
  - Depressed mood [Unknown]
  - Muscular weakness [Unknown]

NARRATIVE: CASE EVENT DATE: 2015
